FAERS Safety Report 9223709 (Version 2)
Quarter: 2013Q3

REPORT INFORMATION
  Report Type: Spontaneous
  Country: DE (occurrence: DE)
  Receive Date: 20130410
  Receipt Date: 20130723
  Transmission Date: 20140515
  Serious: Yes (Disabling)
  Sender: FDA-Public Use
  Company Number: GXKR2013DE001413

PATIENT
  Age: 33 Year
  Sex: Female

DRUGS (2)
  1. COTRIM 1A PHARMA [Suspect]
     Indication: CYSTITIS
     Dosage: 1 DF, BID
     Route: 048
     Dates: start: 20130311, end: 20130316
  2. CERAZETTE [Concomitant]
     Indication: CONTRACEPTION

REACTIONS (1)
  - Visual acuity reduced [Not Recovered/Not Resolved]
